FAERS Safety Report 6970645-3 (Version None)
Quarter: 2010Q3

REPORT INFORMATION
  Report Type: 
  Country: None (occurrence: None)
  Receive Date: 20100908
  Receipt Date: 20100903
  Transmission Date: 20110219
  Serious: No
  Sender: FDA-Public Use
  Company Number: US-PFIZER INC-2010111830

PATIENT
  Sex: Male
  Weight: 77.098 kg

DRUGS (1)
  1. SUTENT [Suspect]
     Indication: LUNG DISORDER
     Dosage: 50 MG, DAILY
     Route: 048
     Dates: start: 20100601

REACTIONS (4)
  - BURNING SENSATION [None]
  - GAIT DISTURBANCE [None]
  - GLOSSODYNIA [None]
  - TOOTH DISORDER [None]
